FAERS Safety Report 23308953 (Version 1)
Quarter: 2023Q4

REPORT INFORMATION
  Report Type: Spontaneous
  Country: US (occurrence: None)
  Receive Date: 20231216
  Receipt Date: 20231216
  Transmission Date: 20240110
  Serious: Yes (Hospitalization, Disabling, Other)
  Sender: FDA-Public Use
  Company Number: None

PATIENT
  Age: 36 Year
  Sex: Male
  Weight: 95.4 kg

DRUGS (10)
  1. VEMLIDY [Suspect]
     Active Substance: TENOFOVIR ALAFENAMIDE FUMARATE
     Indication: Hepatitis B
     Dosage: OTHER QUANTITY : 1 TABLET(S);?
     Route: 048
     Dates: start: 20190115, end: 20230915
  2. PROPRANOLOL [Concomitant]
     Active Substance: PROPRANOLOL HYDROCHLORIDE
  3. alprazalam [Concomitant]
  4. MIRTAZAPINE [Concomitant]
     Active Substance: MIRTAZAPINE
  5. NAPROXEN [Concomitant]
     Active Substance: NAPROXEN
  6. flexer il [Concomitant]
  7. HERBALS [Concomitant]
     Active Substance: HERBALS
  8. MULTI-VITAMIN [Concomitant]
     Active Substance: .ALPHA.-TOCOPHEROL ACETATE, DL-\ASCORBIC ACID\CYANOCOBALAMIN\FLUORIDE ION\FOLIC ACID\NIACIN\PYRIDOXI
  9. FISH OIL [Concomitant]
     Active Substance: FISH OIL
  10. HERBALS\WITHANIA SOMNIFERA ROOT [Concomitant]
     Active Substance: HERBALS\WITHANIA SOMNIFERA ROOT

REACTIONS (11)
  - Hypersensitivity [None]
  - Lactic acidosis [None]
  - Renal disorder [None]
  - Liver disorder [None]
  - Insurance issue [None]
  - Product distribution issue [None]
  - Dyspnoea [None]
  - Pain [None]
  - Tremor [None]
  - General physical health deterioration [None]
  - Staphylococcal infection [None]

NARRATIVE: CASE EVENT DATE: 20221222
